FAERS Safety Report 8957088 (Version 1)
Quarter: 2012Q4

REPORT INFORMATION
  Report Type: Spontaneous
  Country: US (occurrence: None)
  Receive Date: 20121205
  Receipt Date: 20121205
  Transmission Date: 20130627
  Serious: Yes (Other)
  Sender: FDA-Public Use
  Company Number: None

PATIENT
  Age: 26 Year
  Sex: Female
  Weight: 86.18 kg

DRUGS (1)
  1. MIRENA IUD [Suspect]

REACTIONS (13)
  - Menorrhagia [None]
  - Pain [None]
  - Loss of consciousness [None]
  - Infection [None]
  - Uterine perforation [None]
  - Device dislocation [None]
  - Gastrointestinal disorder [None]
  - Scar [None]
  - Abdominal distension [None]
  - Post procedural complication [None]
  - Haemorrhage [None]
  - Painful defaecation [None]
  - Haematochezia [None]
